FAERS Safety Report 23523032 (Version 1)
Quarter: 2024Q1

REPORT INFORMATION
  Report Type: Spontaneous
  Country: ES (occurrence: ES)
  Receive Date: 20240214
  Receipt Date: 20240214
  Transmission Date: 20240410
  Serious: Yes (Death, Hospitalization)
  Sender: FDA-Public Use
  Company Number: None

PATIENT
  Age: 77 Year
  Sex: Male

DRUGS (6)
  1. PREGABALIN [Suspect]
     Active Substance: PREGABALIN
     Indication: Post herpetic neuralgia
     Dosage: PREGABALINA (3897A)
     Route: 048
     Dates: start: 202309, end: 20231025
  2. FLUAD TETRA [Suspect]
     Active Substance: INFLUENZA VIRUS VACCINE
     Indication: Antiviral prophylaxis
     Dosage: INJECTABLE SUSPENSION IN PRE-FILLED SYRINGE 10 PRE-FILLED SYRINGES WITHOUT 0.5 M NEEDLE
     Route: 030
     Dates: start: 20231023, end: 20231023
  3. COMIRNATY (TOZINAMERAN) [Suspect]
     Active Substance: TOZINAMERAN
     Indication: Immunisation
     Dosage: 30 MICROGRAMOS/DOSIS DISPERSION INYECTABLE, 10 VIALES MULTIDOSE
     Route: 030
     Dates: start: 20231023, end: 20231023
  4. CLOPIDOGREL [Suspect]
     Active Substance: CLOPIDOGREL BISULFATE
     Indication: Cardiovascular event prophylaxis
     Route: 048
     Dates: start: 20230921
  5. OMEPRAZOLE [Concomitant]
     Active Substance: OMEPRAZOLE
     Indication: Prophylaxis
     Route: 048
     Dates: start: 201909, end: 20231025
  6. ATORVASTATIN [Concomitant]
     Active Substance: ATORVASTATIN
     Indication: Dyslipidaemia
     Route: 048
     Dates: start: 20230925

REACTIONS (2)
  - Pneumonia [Fatal]
  - Agranulocytosis [Fatal]

NARRATIVE: CASE EVENT DATE: 20231024
